FAERS Safety Report 11288707 (Version 1)
Quarter: 2015Q3

REPORT INFORMATION
  Report Type: Spontaneous
  Country: US (occurrence: US)
  Receive Date: 20150721
  Receipt Date: 20150721
  Transmission Date: 20151125
  Serious: No
  Sender: FDA-Public Use
  Company Number: US-UNITED THERAPEUTICS-UNT-2015-003786

PATIENT
  Age: 47 Year
  Sex: Male
  Weight: 78.91 kg

DRUGS (5)
  1. REMODULIN [Suspect]
     Active Substance: TREPROSTINIL
     Dosage: 0.021 ?G/KG/MIN, CONTINUING
     Route: 058
     Dates: start: 20150311
  2. REMODULIN [Suspect]
     Active Substance: TREPROSTINIL
     Dosage: 0.021 ?G/KG/MIN, CONTINUING
     Route: 058
     Dates: start: 20150327
  3. REMODULIN [Suspect]
     Active Substance: TREPROSTINIL
     Dosage: 0.018 ?G/KG/MIN, CONTINUING
     Route: 058
     Dates: start: 20150409
  4. REMODULIN [Suspect]
     Active Substance: TREPROSTINIL
     Indication: PULMONARY ARTERIAL HYPERTENSION
     Dosage: 0.012 ?G/KG/MIN, CONTINUING
     Route: 058
  5. LETAIRIS [Suspect]
     Active Substance: AMBRISENTAN
     Indication: PULMONARY ARTERIAL HYPERTENSION
     Dosage: 10 MG, QD
     Route: 065
     Dates: start: 20150331

REACTIONS (20)
  - Headache [Unknown]
  - Infusion site oedema [Unknown]
  - Infusion site induration [Unknown]
  - Pain in extremity [Not Recovered/Not Resolved]
  - Infusion site pruritus [Unknown]
  - Infusion site bruising [Unknown]
  - Pain [Unknown]
  - Infusion site urticaria [Unknown]
  - Vomiting [Unknown]
  - Weight increased [Unknown]
  - Dizziness [Not Recovered/Not Resolved]
  - Nausea [Unknown]
  - Infusion site discomfort [Unknown]
  - Infusion site infection [Unknown]
  - Injection site discharge [Unknown]
  - Oedema [Unknown]
  - Infusion site warmth [Unknown]
  - Infusion site erythema [Unknown]
  - Infusion site pain [Unknown]
  - Skin discolouration [Unknown]

NARRATIVE: CASE EVENT DATE: 20150331
